FAERS Safety Report 6553999-1 (Version None)
Quarter: 2010Q1

REPORT INFORMATION
  Report Type: 
  Country: None (occurrence: None)
  Receive Date: 20100127
  Receipt Date: 20100122
  Transmission Date: 20100710
  Serious: Yes (Death, Hospitalization)
  Sender: FDA-Public Use
  Company Number: CH-CELGENEUS-151-50794-10010466

PATIENT
  Sex: Female

DRUGS (8)
  1. VIDAZA [Suspect]
     Indication: ACUTE MYELOMONOCYTIC LEUKAEMIA
     Route: 058
     Dates: start: 20091215
  2. DOUBLE J KFIHETER [Concomitant]
     Indication: DRUG USE FOR UNKNOWN INDICATION
     Route: 065
     Dates: start: 20091214
  3. KONAKION [Concomitant]
     Route: 051
     Dates: start: 20091222, end: 20100106
  4. SODIUM BICARBONATE [Concomitant]
     Indication: DRUG USE FOR UNKNOWN INDICATION
     Dosage: 500-1000 ML/G
     Route: 051
     Dates: start: 20091215
  5. DIAMOX SRC [Concomitant]
     Indication: DRUG USE FOR UNKNOWN INDICATION
     Dosage: 500-0-1000MG
     Route: 048
     Dates: start: 20091215
  6. ROCEPHIN [Concomitant]
     Indication: DRUG USE FOR UNKNOWN INDICATION
     Route: 051
     Dates: start: 20091216, end: 20091219
  7. FRAXIPARIN [Concomitant]
     Indication: DRUG USE FOR UNKNOWN INDICATION
     Route: 065
     Dates: start: 20091212, end: 20091215
  8. ZYLORIC [Concomitant]
     Indication: DRUG USE FOR UNKNOWN INDICATION
     Route: 048

REACTIONS (4)
  - CEREBRAL HAEMORRHAGE [None]
  - CIRCULATORY COLLAPSE [None]
  - PNEUMONIA [None]
  - SEPSIS [None]
